FAERS Safety Report 12580794 (Version 1)
Quarter: 2016Q3

REPORT INFORMATION
  Report Type: Spontaneous
  Country: US (occurrence: US)
  Receive Date: 20160721
  Receipt Date: 20160721
  Transmission Date: 20161109
  Serious: No
  Sender: FDA-Public Use
  Company Number: US-PFIZER INC-2016322495

PATIENT
  Age: 52 Year
  Sex: Female
  Weight: 56 kg

DRUGS (2)
  1. ADVIL [Suspect]
     Active Substance: IBUPROFEN
     Indication: NECK PAIN
     Dosage: 2 DF, UNK
     Dates: start: 20160606, end: 201606
  2. ADVIL [Suspect]
     Active Substance: IBUPROFEN
     Dosage: 3 DF, UNK
     Dates: start: 201606

REACTIONS (8)
  - Intentional product use issue [Unknown]
  - Obstructive defaecation [Unknown]
  - Constipation [Unknown]
  - Drug effect incomplete [Unknown]
  - Nerve compression [Unknown]
  - Haemorrhoids [Unknown]
  - Muscle spasms [Recovered/Resolved]
  - Gait disturbance [Unknown]

NARRATIVE: CASE EVENT DATE: 201606
